FAERS Safety Report 9670550 (Version 4)
Quarter: 2014Q1

REPORT INFORMATION
  Report Type: Spontaneous
  Country: US (occurrence: US)
  Receive Date: 20131106
  Receipt Date: 20140114
  Transmission Date: 20141002
  Serious: Yes (Hospitalization)
  Sender: FDA-Public Use
  Company Number: US-BIOGENIDEC-2013BI100577

PATIENT
  Age: 30 Year
  Sex: Male

DRUGS (10)
  1. TECFIDERA [Suspect]
     Indication: PRODUCT USED FOR UNKNOWN INDICATION
     Route: 048
     Dates: start: 20130920, end: 20130926
  2. TECFIDERA [Suspect]
     Indication: PRODUCT USED FOR UNKNOWN INDICATION
     Route: 048
     Dates: start: 20130927, end: 20131103
  3. TYSABRI [Concomitant]
     Indication: MULTIPLE SCLEROSIS
     Route: 042
     Dates: start: 20100913, end: 20110113
  4. MELOXICAM [Concomitant]
     Route: 048
  5. ZOLPIDEM [Concomitant]
  6. PROPANOLOL [Concomitant]
  7. LAMOTRIGINE [Concomitant]
  8. PANTOPRAZOLE [Concomitant]
  9. ADDERALL [Concomitant]
  10. CHOLECALCIFEROL [Concomitant]

REACTIONS (5)
  - Pancreatitis acute [Recovered/Resolved]
  - Abdominal pain [Unknown]
  - Haematemesis [Unknown]
  - Cholecystitis [Unknown]
  - Vomiting [Unknown]
